FAERS Safety Report 14822192 (Version 5)
Quarter: 2019Q2

REPORT INFORMATION
  Report Type: Spontaneous
  Country: JP (occurrence: JP)
  Receive Date: 20180427
  Receipt Date: 20190622
  Transmission Date: 20190711
  Serious: Yes (Hospitalization, Other)
  Sender: FDA-Public Use
  Company Number: JP-UNITED THERAPEUTICS-UNT-2018-005858

PATIENT
  Age: 33 Year
  Sex: Female
  Weight: 51.1 kg

DRUGS (7)
  1. RIOCIGUAT. [Concomitant]
     Active Substance: RIOCIGUAT
     Indication: PULMONARY ARTERIAL HYPERTENSION
     Dosage: 7.5 MG, UNK
     Route: 048
  2. REMODULIN [Suspect]
     Active Substance: TREPROSTINIL
     Indication: PULMONARY ARTERIAL HYPERTENSION
     Dosage: UNK
     Route: 041
     Dates: start: 20180330, end: 20180511
  3. MACITENTAN [Concomitant]
     Active Substance: MACITENTAN
     Indication: PULMONARY ARTERIAL HYPERTENSION
     Dosage: 10 MG, UNK
     Route: 048
     Dates: start: 201803
  4. FUROSEMIDE. [Concomitant]
     Active Substance: FUROSEMIDE
     Indication: PULMONARY ARTERIAL HYPERTENSION
     Dosage: UNK
     Route: 048
  5. REMODULIN [Suspect]
     Active Substance: TREPROSTINIL
     Dosage: 0.075 ?G/KG, CONTINUING
     Route: 041
     Dates: start: 20180508
  6. REMODULIN [Suspect]
     Active Substance: TREPROSTINIL
     Indication: PULMONARY ARTERIAL HYPERTENSION
     Dosage: 0.074 ?G/KG, CONTINUING
     Route: 058
     Dates: start: 20180512
  7. REMODULIN [Suspect]
     Active Substance: TREPROSTINIL
     Dosage: 0.040 ?G/KG, CONTINUING
     Route: 041
     Dates: start: 20180419

REACTIONS (7)
  - Left ventricular failure [Recovering/Resolving]
  - Anaemia [Not Recovered/Not Resolved]
  - Vascular device infection [Recovering/Resolving]
  - Injection site warmth [Unknown]
  - Menorrhagia [Unknown]
  - Injection site induration [Unknown]
  - Infusion site pain [Not Recovered/Not Resolved]

NARRATIVE: CASE EVENT DATE: 2018
